FAERS Safety Report 10177647 (Version 2)
Quarter: 2014Q2

REPORT INFORMATION
  Report Type: Spontaneous
  Country: US (occurrence: US)
  Receive Date: 20140516
  Receipt Date: 20140611
  Transmission Date: 20141212
  Serious: Yes (Death, Hospitalization)
  Sender: FDA-Public Use
  Company Number: US-ACTELION-A-NJ2014-98800

PATIENT
  Age: 61 Year
  Sex: Male

DRUGS (4)
  1. VELETRI [Suspect]
     Indication: PULMONARY ARTERIAL HYPERTENSION
     Dosage: 37.7 NG/KG, PER MIN
     Route: 042
     Dates: start: 20110331
  2. OPSUMIT [Suspect]
     Indication: PULMONARY ARTERIAL HYPERTENSION
     Dosage: UNK
     Route: 048
     Dates: start: 20140108
  3. WARFARIN [Concomitant]
     Dosage: 3.25 MG, QID
     Dates: start: 20110310
  4. REVATIO [Concomitant]
     Dosage: 20 MG, TID
     Dates: start: 20110309

REACTIONS (6)
  - Death [Fatal]
  - Life support [Unknown]
  - Pneumonia [Unknown]
  - Pulmonary oedema [Unknown]
  - Fluid overload [Unknown]
  - Dyspnoea [Unknown]
